FAERS Safety Report 16468830 (Version 1)
Quarter: 2019Q2

REPORT INFORMATION
  Report Type: Spontaneous
  Country: US (occurrence: US)
  Receive Date: 20190514
  Receipt Date: 20190514
  Transmission Date: 20190711
  Serious: Yes (Other)
  Sender: FDA-Public Use
  Company Number: None

PATIENT
  Age: 74 Year
  Sex: Male
  Weight: 78.02 kg

DRUGS (4)
  1. AREDS 2 [Concomitant]
     Active Substance: MINERALS\VITAMINS
  2. VITAMIN D3 [Concomitant]
     Active Substance: CHOLECALCIFEROL
  3. VITAMIN B12 [Concomitant]
     Active Substance: CYANOCOBALAMIN
  4. FLUOCINONIDE. [Suspect]
     Active Substance: FLUOCINONIDE
     Indication: DANDRUFF
     Dosage: ?          OTHER STRENGTH:0.05 PER 60ML;OTHER ROUTE:SKIN?
     Dates: start: 20190417, end: 20190420

REACTIONS (2)
  - Urine flow decreased [None]
  - Therapy cessation [None]

NARRATIVE: CASE EVENT DATE: 20190417
